FAERS Safety Report 17305615 (Version 1)
Quarter: 2020Q1

REPORT INFORMATION
  Report Type: Spontaneous
  Country: GR (occurrence: GR)
  Receive Date: 20200123
  Receipt Date: 20200123
  Transmission Date: 20200409
  Serious: Yes (Hospitalization)
  Sender: FDA-Public Use
  Company Number: GR-MYLANLABS-2020M1007419

PATIENT
  Age: 44 Year
  Sex: Female

DRUGS (3)
  1. CAPECITABINE. [Suspect]
     Active Substance: CAPECITABINE
     Indication: COLON CANCER METASTATIC
     Dosage: RECEIVED CONTINUOUSLY AS MAINTENANCE THERAPY.
     Route: 065
  2. BRIVUDINE [Interacting]
     Active Substance: BRIVUDINE
     Indication: HERPES ZOSTER
     Dosage: 125 MILLIGRAM, QD
     Route: 065
  3. BEVACIZUMAB. [Concomitant]
     Active Substance: BEVACIZUMAB
     Indication: COLON CANCER METASTATIC
     Dosage: RECEIVED IN EVERY 21 DAYS AS MAINTENANCE THERAPY.
     Route: 065

REACTIONS (12)
  - Oesophagitis [Recovered/Resolved]
  - Stomatitis [Recovered/Resolved]
  - Thrombocytopenia [Recovered/Resolved]
  - Accidental exposure to product [Recovering/Resolving]
  - Labelled drug-drug interaction medication error [Recovering/Resolving]
  - Anaemia [Recovered/Resolved]
  - Rash maculo-papular [Recovering/Resolving]
  - Alopecia [Recovering/Resolving]
  - Neutropenia [Recovered/Resolved]
  - Clostridium difficile infection [Recovering/Resolving]
  - Diarrhoea [Recovered/Resolved]
  - Dysphagia [Recovered/Resolved]
